FAERS Safety Report 10144061 (Version 3)
Quarter: 2020Q4

REPORT INFORMATION
  Report Type: Spontaneous
  Country: IT (occurrence: IT)
  Receive Date: 20140430
  Receipt Date: 20201015
  Transmission Date: 20210113
  Serious: Yes (Other)
  Sender: FDA-Public Use
  Company Number: IT-TEVA-441566ISR

PATIENT
  Age: 74 Year
  Sex: Male

DRUGS (4)
  1. CALCIO LEVOFOLINATO TEVA [Suspect]
     Active Substance: LEVOLEUCOVORIN CALCIUM
     Indication: OESOPHAGEAL CARCINOMA
     Dosage: POWDER FOR SOLUTION FOR INFUSION
     Route: 042
     Dates: start: 20130729, end: 20130729
  2. OXALIPLATINO HOSPIRA [Suspect]
     Active Substance: OXALIPLATIN
     Indication: OESOPHAGEAL CARCINOMA
     Route: 042
     Dates: start: 20130729, end: 20130729
  3. LEVOPRAID 25 MG [Concomitant]
     Route: 048
  4. FLUOROURACIL TEVA [Suspect]
     Active Substance: FLUOROURACIL
     Indication: OESOPHAGEAL CARCINOMA
     Route: 042
     Dates: start: 20130729, end: 20130729

REACTIONS (2)
  - Melaena [Recovering/Resolving]
  - Anaemia [Recovering/Resolving]

NARRATIVE: CASE EVENT DATE: 20130816
